FAERS Safety Report 5031389-0 (Version None)
Quarter: 2006Q2

REPORT INFORMATION
  Report Type: 
  Country: None (occurrence: None)
  Receive Date: 20060621
  Receipt Date: 20060614
  Transmission Date: 20061013
  Serious: Yes (Hospitalization)
  Sender: FDA-Public Use
  Company Number: JP-ROCHE-451940

PATIENT
  Age: 74 Year
  Sex: Male

DRUGS (4)
  1. PANALDINE [Suspect]
     Indication: THROMBOSIS PROPHYLAXIS
     Route: 048
     Dates: start: 20060511, end: 20060522
  2. GASTER [Suspect]
     Indication: DRUG USE FOR UNKNOWN INDICATION
     Dosage: THERAPY DURATION REPORTED AS: 0 MONTHS
     Route: 065
     Dates: start: 20060511, end: 20060515
  3. NITOROL [Concomitant]
     Dosage: THERAPY DURATION REPORTED AS: 0 MONTHS
     Dates: start: 20060511, end: 20060515
  4. BUFFERIN [Concomitant]
     Dosage: THERAPY DURATION REPORTED AS: 0 MONTHS
     Route: 048
     Dates: start: 20060511, end: 20060515

REACTIONS (7)
  - ALANINE AMINOTRANSFERASE INCREASED [None]
  - ASPARTATE AMINOTRANSFERASE INCREASED [None]
  - BLOOD BILIRUBIN INCREASED [None]
  - LIVER DISORDER [None]
  - MALAISE [None]
  - NAUSEA [None]
  - VOMITING [None]
